FAERS Safety Report 7001957-5 (Version None)
Quarter: 2010Q3

REPORT INFORMATION
  Report Type: 
  Country: None (occurrence: None)
  Receive Date: 20100920
  Receipt Date: 20100916
  Transmission Date: 20110219
  Serious: Yes (Hospitalization)
  Sender: FDA-Public Use
  Company Number: A0881498A

PATIENT
  Age: 56 Year
  Sex: Female

DRUGS (5)
  1. ADVAIR DISKUS 100/50 [Suspect]
     Indication: CHRONIC OBSTRUCTIVE PULMONARY DISEASE
     Dosage: 1PUFF TWICE PER DAY
     Route: 055
  2. VENTOLIN [Suspect]
     Indication: BRONCHOSPASM
     Route: 055
  3. INSULIN [Concomitant]
  4. CONCURRENT MEDICATIONS [Concomitant]
  5. NICOTINE [Concomitant]
     Indication: SMOKING CESSATION THERAPY
     Route: 062

REACTIONS (4)
  - CARDIAC FAILURE CONGESTIVE [None]
  - GASTRIC HAEMORRHAGE [None]
  - HAEMOBILIA [None]
  - PULMONARY HAEMORRHAGE [None]
